APPROVED DRUG PRODUCT: DYNACIRC CR
Active Ingredient: ISRADIPINE
Strength: 5MG **Federal Register determination that product was not discontinued or withdrawn for safety or effectiveness reasons**
Dosage Form/Route: TABLET, EXTENDED RELEASE;ORAL
Application: N020336 | Product #001
Applicant: GLAXOSMITHKLINE LLC
Approved: Jun 1, 1994 | RLD: Yes | RS: No | Type: DISCN